FAERS Safety Report 23643799 (Version 1)
Quarter: 2024Q1

REPORT INFORMATION
  Report Type: Report from Study
  Country: US (occurrence: US)
  Receive Date: 20240318
  Receipt Date: 20240318
  Transmission Date: 20240409
  Serious: Yes (Hospitalization, Other)
  Sender: FDA-Public Use
  Company Number: US-BAYER-2024A035638

PATIENT
  Age: 70 Year
  Sex: Male

DRUGS (1)
  1. XOFIGO [Suspect]
     Active Substance: RADIUM RA-223 DICHLORIDE
     Indication: Hormone-refractory prostate cancer
     Dosage: 150.80 UCI, ONCE EVERY 28 DAYS
     Route: 042
     Dates: start: 20240110, end: 20240110

REACTIONS (2)
  - Disorientation [Unknown]
  - Malaise [Unknown]

NARRATIVE: CASE EVENT DATE: 20240307
